FAERS Safety Report 7931616-3 (Version None)
Quarter: 2011Q4

REPORT INFORMATION
  Report Type: 
  Country: None (occurrence: None)
  Receive Date: 20111121
  Receipt Date: 20111107
  Transmission Date: 20120403
  Serious: Yes (Other)
  Sender: FDA-Public Use
  Company Number: PHHY2010US72695

PATIENT
  Sex: Female

DRUGS (7)
  1. VERAPAMIL [Suspect]
     Dosage: UNK UKN, UNK
  2. DIOVAN [Suspect]
     Dosage: 2.5 DF, (ONE IN THE MORNING AND 1 AND HALF AT NIGHT)
  3. PROPRANOLOL [Suspect]
  4. ALPRAZOLAM [Concomitant]
  5. DIOVAN [Suspect]
     Indication: BLOOD PRESSURE INCREASED
     Dosage: 2.5 DF (40MG) DAILY
  6. DIOVAN [Suspect]
     Dosage: 1.5 DF, (40MG)
  7. BENICAR [Suspect]
     Dosage: 20 MG, BID (HALF IN THE MORNING AND HALF AT NIGHT)
     Dates: start: 20111107

REACTIONS (10)
  - BLOOD PRESSURE INCREASED [None]
  - FEAR [None]
  - CARDIAC FIBRILLATION [None]
  - CONFUSIONAL STATE [None]
  - DIZZINESS [None]
  - MENTAL IMPAIRMENT [None]
  - FEELING ABNORMAL [None]
  - VISION BLURRED [None]
  - HYPOTENSION [None]
  - RASH [None]
